FAERS Safety Report 14241542 (Version 1)
Quarter: 2017Q4

REPORT INFORMATION
  Report Type: Report from Study
  Country: CA (occurrence: CA)
  Receive Date: 20171201
  Receipt Date: 20171201
  Transmission Date: 20180321
  Serious: Yes (Life-Threatening, Hospitalization)
  Sender: FDA-Public Use
  Company Number: CA-HLSUS-2017-CA-001013

PATIENT
  Age: 47 Year
  Sex: Female
  Weight: 162 kg

DRUGS (1)
  1. CLOZARIL [Suspect]
     Active Substance: CLOZAPINE
     Indication: BIPOLAR DISORDER
     Dosage: 375 MG DAILY BED TIME
     Route: 048
     Dates: start: 20130411

REACTIONS (7)
  - Somnolence [Unknown]
  - Drooling [Unknown]
  - Haemoglobin decreased [Unknown]
  - Pneumonia [Recovered/Resolved]
  - Liver function test increased [Unknown]
  - White blood cell count increased [Recovered/Resolved]
  - Platelet count increased [Unknown]

NARRATIVE: CASE EVENT DATE: 20170606
